FAERS Safety Report 4760338-5 (Version None)
Quarter: 2005Q3

REPORT INFORMATION
  Report Type: 
  Country: None (occurrence: None)
  Receive Date: 20050831
  Receipt Date: 20050811
  Transmission Date: 20060218
  Serious: Yes (Other)
  Sender: FDA-Public Use
  Company Number: JP_050606701

PATIENT
  Age: 83 Year
  Sex: Female
  Weight: 48 kg

DRUGS (3)
  1. EVISTA [Suspect]
     Indication: OSTEOPOROSIS
     Dosage: 60 MG/1 DAY
     Dates: start: 20050228, end: 20050506
  2. JUVELA (TOCOPHERYL NICOTINATE) [Concomitant]
  3. ALFAROL (ALFACALCIDOL) [Concomitant]

REACTIONS (2)
  - PAIN [None]
  - POST HERPETIC NEURALGIA [None]
